FAERS Safety Report 12676146 (Version 1)
Quarter: 2016Q3

REPORT INFORMATION
  Report Type: Report from Study
  Country: BR (occurrence: BR)
  Receive Date: 20160823
  Receipt Date: 20160823
  Transmission Date: 20161109
  Serious: Yes (Other)
  Sender: FDA-Public Use
  Company Number: PHHY2016BR114893

PATIENT
  Age: 73 Year
  Sex: Female

DRUGS (1)
  1. ACLASTA [Suspect]
     Active Substance: ZOLEDRONIC ACID
     Indication: BLOOD CALCIUM ABNORMAL
     Dosage: 5 MG/KG, Q12MO
     Route: 042

REACTIONS (6)
  - Abdominal discomfort [Unknown]
  - Labyrinthitis [Unknown]
  - Fall [Unknown]
  - Product use issue [Unknown]
  - Dizziness [Unknown]
  - Rib fracture [Recovered/Resolved with Sequelae]

NARRATIVE: CASE EVENT DATE: 20160803
